FAERS Safety Report 14090892 (Version 3)
Quarter: 2018Q1

REPORT INFORMATION
  Report Type: Report from Study
  Country: None (occurrence: ES)
  Receive Date: 20171015
  Receipt Date: 20180309
  Transmission Date: 20180508
  Serious: Yes (Hospitalization, Other)
  Sender: FDA-Public Use
  Company Number: ES-ABBVIE-17K-144-2120871-00

PATIENT
  Age: 57 Year
  Sex: Male

DRUGS (2)
  1. DUODOPA [Suspect]
     Active Substance: CARBIDOPA\LEVODOPA
     Indication: PARKINSON^S DISEASE
     Dosage: WITH 2-3 EXTRA DOSES PER DAY
     Route: 050
     Dates: start: 20170623, end: 2017
  2. DUODOPA [Suspect]
     Active Substance: CARBIDOPA\LEVODOPA
     Dosage: INCREASED CONTINUOUS DOSE TO 4.4 ML AND EXTRA DOSE TO 3.5 ML.
     Route: 050
     Dates: start: 2017

REACTIONS (4)
  - Gait disturbance [Unknown]
  - Freezing phenomenon [Recovering/Resolving]
  - Intervertebral disc protrusion [Not Recovered/Not Resolved]
  - Device occlusion [Unknown]

NARRATIVE: CASE EVENT DATE: 20170927
